FAERS Safety Report 7180197-3 (Version None)
Quarter: 2010Q4

REPORT INFORMATION
  Report Type: 
  Country: None (occurrence: None)
  Receive Date: 20101221
  Receipt Date: 20101214
  Transmission Date: 20110411
  Serious: Yes (Other)
  Sender: FDA-Public Use
  Company Number: US-US-EMD SERONO, INC.-7015215

PATIENT
  Sex: Female
  Weight: 67 kg

DRUGS (2)
  1. REBIF [Suspect]
     Indication: MULTIPLE SCLEROSIS
     Route: 058
     Dates: start: 20091217, end: 20100927
  2. GABAPENTIN [Concomitant]
     Indication: MULTIPLE SCLEROSIS
     Dates: end: 20100901

REACTIONS (4)
  - ANAEMIA [None]
  - INJECTION SITE HAEMATOMA [None]
  - RETINAL EXUDATES [None]
  - RETINAL ISCHAEMIA [None]
